FAERS Safety Report 14924620 (Version 1)
Quarter: 2018Q2

REPORT INFORMATION
  Report Type: Spontaneous
  Country: US (occurrence: US)
  Receive Date: 20180503
  Receipt Date: 20180503
  Transmission Date: 20180711
  Serious: Yes (Disabling)
  Sender: FDA-Public Use
  Company Number: None

PATIENT
  Age: 33 Year
  Sex: Female
  Weight: 51.75 kg

DRUGS (1)
  1. TREMFYA [Suspect]
     Active Substance: GUSELKUMAB
     Indication: PSORIASIS
     Dosage: ?          QUANTITY:1 INJECTION(S);OTHER FREQUENCY:8 WEEKS;?
     Route: 058
     Dates: start: 20180409

REACTIONS (1)
  - Neck pain [None]

NARRATIVE: CASE EVENT DATE: 20180416
